FAERS Safety Report 5044733-5 (Version None)
Quarter: 2006Q2

REPORT INFORMATION
  Report Type: 
  Country: None (occurrence: None)
  Receive Date: 20060601
  Receipt Date: 20060307
  Transmission Date: 20061013
  Serious: No
  Sender: FDA-Public Use
  Company Number: 2006-BP-01952BP

PATIENT
  Age: 80 Year
  Sex: Female

DRUGS (5)
  1. SPIRIVA [Suspect]
     Indication: CHRONIC OBSTRUCTIVE PULMONARY DISEASE
     Dosage: ONE (18 MCG), IH
     Route: 055
     Dates: start: 20040301
  2. ALBUTEROL (SALBUTAMOL SULFATE) [Suspect]
  3. ADVAIR (SERETIDE /01420901/) [Concomitant]
  4. COZAAR [Concomitant]
  5. ASPIRIN [Concomitant]

REACTIONS (4)
  - COUGH [None]
  - DRY MOUTH [None]
  - DRY THROAT [None]
  - DYSPHONIA [None]
